FAERS Safety Report 7727844 (Version 3)
Quarter: 2012Q4

REPORT INFORMATION
  Report Type: 
  Country: US (occurrence: US)
  Receive Date: 20101222
  Receipt Date: 20121008
  Transmission Date: 20130627
  Serious: Yes (Other)
  Sender: FDA-Public Use
  Company Number: US-ROCHE-727279

PATIENT
  Age: 16 None
  Sex: Male
  Weight: 47.6 kg

DRUGS (4)
  1. ACCUTANE [Suspect]
     Indication: ACNE
     Route: 048
     Dates: start: 20070215, end: 20070328
  2. ACCUTANE [Suspect]
     Route: 048
     Dates: start: 20070329, end: 20070817
  3. AMNESTEEM [Suspect]
     Indication: PRODUCT USED FOR UNKNOWN INDICATION
     Route: 065
  4. MOTRIN [Concomitant]
     Dosage: SIX DAILY
     Route: 065

REACTIONS (15)
  - Gastrointestinal injury [Unknown]
  - Crohn^s disease [Unknown]
  - Inflammatory bowel disease [Unknown]
  - Rheumatoid arthritis [Unknown]
  - Anaemia [Unknown]
  - Arthritis [Unknown]
  - Back pain [Unknown]
  - Vision blurred [Unknown]
  - Arthritis enteropathic [Unknown]
  - Arthralgia [Unknown]
  - Depression [Unknown]
  - Pain in extremity [Unknown]
  - Neck pain [Unknown]
  - Systemic inflammatory response syndrome [Unknown]
  - Arthralgia [Unknown]
